FAERS Safety Report 5939026-5 (Version None)
Quarter: 2008Q4

REPORT INFORMATION
  Report Type: 
  Country: None (occurrence: None)
  Receive Date: 20081103
  Receipt Date: 20081028
  Transmission Date: 20090506
  Serious: Yes (Life-Threatening)
  Sender: FDA-Public Use
  Company Number: NL-JNJFOC-20081005363

PATIENT
  Age: 13 Year
  Sex: Male
  Weight: 40 kg

DRUGS (2)
  1. RISPERDAL [Suspect]
     Indication: ANXIETY
     Route: 048
  2. RISPERDAL [Suspect]
     Indication: ABNORMAL BEHAVIOUR
     Dosage: HALF A TABLET
     Route: 048

REACTIONS (9)
  - ARRHYTHMIA [None]
  - DEPRESSED LEVEL OF CONSCIOUSNESS [None]
  - ELECTROCARDIOGRAM QT PROLONGED [None]
  - HEADACHE [None]
  - HEMIPLEGIA [None]
  - HYPOTENSION [None]
  - INAPPROPRIATE SCHEDULE OF DRUG ADMINISTRATION [None]
  - ISCHAEMIA [None]
  - MALAISE [None]
